FAERS Safety Report 12993539 (Version 4)
Quarter: 2017Q1

REPORT INFORMATION
  Report Type: Spontaneous
  Country: JP (occurrence: JP)
  Receive Date: 20161202
  Receipt Date: 20170315
  Transmission Date: 20170428
  Serious: Yes (Other)
  Sender: FDA-Public Use
  Company Number: JP-PFIZER INC-2016550167

PATIENT
  Age: 73 Year
  Sex: Female
  Weight: 56.5 kg

DRUGS (17)
  1. METGLUCO [Suspect]
     Active Substance: METFORMIN HYDROCHLORIDE
     Dosage: 500 MG, 3X/DAY
     Route: 048
     Dates: start: 20141211, end: 20151111
  2. SUREPOST [Suspect]
     Active Substance: REPAGLINIDE
     Dosage: 0.5 MG, 3X/DAY
     Route: 048
     Dates: start: 20160205, end: 20160915
  3. SUREPOST [Suspect]
     Active Substance: REPAGLINIDE
     Dosage: 0.25 MG ONCE DAILY AND 0.5 MG TWICE DAILY
     Route: 048
     Dates: start: 20160916
  4. CELECOX [Suspect]
     Active Substance: CELECOXIB
     Dosage: 100 MG, 1X/DAY
     Route: 048
     Dates: start: 20160414, end: 20161026
  5. CELECOX [Suspect]
     Active Substance: CELECOXIB
     Dosage: 100 MG, 2X/DAY
     Route: 048
     Dates: start: 20161027, end: 20170302
  6. METGLUCO [Suspect]
     Active Substance: METFORMIN HYDROCHLORIDE
     Dosage: 500 MG, 3X/DAY
     Route: 048
     Dates: start: 20160303
  7. SUREPOST [Suspect]
     Active Substance: REPAGLINIDE
     Indication: DIABETES MELLITUS
     Dosage: 0.25 MG, 3X/DAY
     Route: 048
     Dates: start: 20150521, end: 20150708
  8. TRAMCET [Suspect]
     Active Substance: ACETAMINOPHEN\TRAMADOL
     Indication: ARTHRALGIA
     Dosage: 362.5 MG, 3X/DAY
     Route: 048
     Dates: start: 20161114, end: 20161205
  9. SUREPOST [Suspect]
     Active Substance: REPAGLINIDE
     Dosage: 0.25 MG, 3X/DAY
     Route: 048
     Dates: start: 20151224, end: 20160203
  10. METGLUCO [Suspect]
     Active Substance: METFORMIN HYDROCHLORIDE
     Dosage: 500 MG, 2X/DAY
     Route: 048
     Dates: start: 20140821, end: 20141210
  11. SUINY [Suspect]
     Active Substance: ANAGLIPTIN
     Dosage: 150 MG, 2X/DAY
     Route: 048
     Dates: start: 20160414
  12. METGLUCO [Suspect]
     Active Substance: METFORMIN HYDROCHLORIDE
     Dosage: 500 MG, 2X/DAY
     Route: 048
     Dates: start: 20151112, end: 20160302
  13. SUREPOST [Suspect]
     Active Substance: REPAGLINIDE
     Dosage: 0.5 MG, 3X/DAY
     Route: 048
     Dates: start: 20150709, end: 20151111
  14. APLEWAY [Suspect]
     Active Substance: TOFOGLIFLOZIN
     Indication: DIABETES MELLITUS
     Dosage: 20 MG, 1X/DAY
     Route: 048
     Dates: start: 20151112, end: 20160302
  15. METGLUCO [Suspect]
     Active Substance: METFORMIN HYDROCHLORIDE
     Indication: DIABETES MELLITUS
     Dosage: 250 MG, 3X/DAY
     Route: 048
     Dates: start: 20140424, end: 20140820
  16. CELECOX [Suspect]
     Active Substance: CELECOXIB
     Indication: ARTHRALGIA
     Dosage: 100 MG, 2X/DAY
     Route: 048
     Dates: start: 20130604, end: 20130618
  17. SUINY [Suspect]
     Active Substance: ANAGLIPTIN
     Indication: DIABETES MELLITUS
     Dosage: 100 MG, 2X/DAY
     Route: 048
     Dates: start: 20140821, end: 20160413

REACTIONS (5)
  - Blood uric acid increased [Recovered/Resolved]
  - Proteinuria [Unknown]
  - Renal impairment [Recovering/Resolving]
  - Urine albumin/creatinine ratio decreased [Recovered/Resolved]
  - Glomerular filtration rate decreased [Unknown]

NARRATIVE: CASE EVENT DATE: 20160803
